FAERS Safety Report 7725814-1 (Version None)
Quarter: 2011Q3

REPORT INFORMATION
  Report Type: 
  Country: None (occurrence: None)
  Receive Date: 20110902
  Receipt Date: 20110826
  Transmission Date: 20111222
  Serious: Yes (Other)
  Sender: FDA-Public Use
  Company Number: US-AMGEN-USASP2011043743

PATIENT
  Sex: Male

DRUGS (2)
  1. ABIRATERONE [Concomitant]
     Indication: PROSTATE CANCER
     Route: 048
  2. ARANESP [Suspect]
     Indication: ANAEMIA OF MALIGNANT DISEASE

REACTIONS (1)
  - HAEMOGLOBIN ABNORMAL [None]
